FAERS Safety Report 7531245-X (Version None)
Quarter: 2011Q2

REPORT INFORMATION
  Report Type: 
  Country: None (occurrence: None)
  Receive Date: 20110608
  Receipt Date: 20110517
  Transmission Date: 20111010
  Serious: Yes (Hospitalization, Other)
  Sender: FDA-Public Use
  Company Number: US-BAYER-2010-006756

PATIENT
  Age: 44 Year
  Sex: Female
  Weight: 63.039 kg

DRUGS (9)
  1. YASMIN [Suspect]
     Indication: PRODUCT USED FOR UNKNOWN INDICATION
     Dosage: UNK
     Dates: start: 20030101, end: 20070101
  2. ALCLOMETASONE DIPROPIONATE [Concomitant]
     Indication: ECZEMA
     Dosage: UNK
     Dates: start: 20040101
  3. IBUPROFEN [Concomitant]
     Dosage: UNK
     Dates: end: 20071201
  4. ZETIA [Concomitant]
     Indication: BLOOD CHOLESTEROL INCREASED
     Dosage: 10 MG, QD
     Dates: start: 19890101
  5. ASCORBIC ACID [Concomitant]
     Dosage: UNK
     Dates: start: 19700101
  6. PROTOPIC [Concomitant]
     Indication: ECZEMA
     Dosage: UNK
     Dates: start: 19810101
  7. FISH OIL [Concomitant]
  8. VITAMIN D [Concomitant]
  9. HERBAL TEA (GREEN CHAMOMILE) [Concomitant]
     Dosage: UNK UNK, TIW

REACTIONS (5)
  - TRANSIENT ISCHAEMIC ATTACK [None]
  - PAIN [None]
  - DEEP VEIN THROMBOSIS [None]
  - INJURY [None]
  - CEREBRAL THROMBOSIS [None]
